FAERS Safety Report 9032041 (Version 1)
Quarter: 2013Q1

REPORT INFORMATION
  Report Type: Spontaneous
  Country: US (occurrence: US)
  Receive Date: 20130125
  Receipt Date: 20130125
  Transmission Date: 20140127
  Serious: Yes (Death)
  Sender: FDA-Public Use
  Company Number: PHHY2013US006834

PATIENT
  Age: 38 Year
  Sex: Male

DRUGS (7)
  1. DICLOFENAC [Suspect]
  2. AMLODIPINE BESYLATE [Suspect]
  3. VENLAFAXINE HYDROCHLORIDE [Suspect]
  4. ACETAMINOPHEN (PARACETAMOL), CODEINE PHOSPHATE [Suspect]
  5. HALOPERIDOL [Suspect]
  6. TRIAMTERENE/HCTZ CAPSULES USP [Suspect]
     Indication: HYPERTENSION
  7. ALPRAZOLAM [Suspect]

REACTIONS (1)
  - Completed suicide [Fatal]
